FAERS Safety Report 7265054-6 (Version None)
Quarter: 2011Q1

REPORT INFORMATION
  Report Type: 
  Country: None (occurrence: None)
  Receive Date: 20110131
  Receipt Date: 20110120
  Transmission Date: 20110831
  Serious: Yes (Hospitalization, Other)
  Sender: FDA-Public Use
  Company Number: JP-AMGEN-JPNCT2010009642

PATIENT
  Age: 67 Year
  Sex: Female
  Weight: 43 kg

DRUGS (21)
  1. OXALIPLATIN [Suspect]
     Indication: COLORECTAL CANCER
     Route: 041
     Dates: start: 20100825, end: 20101104
  2. FLUOROURACIL [Suspect]
     Indication: COLORECTAL CANCER
     Route: 040
     Dates: start: 20100825, end: 20101104
  3. DIFFERIN [Concomitant]
     Route: 062
  4. LOXOPROFEN [Concomitant]
     Route: 048
  5. PANITUMUMAB [Suspect]
     Indication: COLORECTAL CANCER
     Dosage: 6 MG/KG, Q2WK
     Route: 041
     Dates: start: 20100825, end: 20101006
  6. CALCIUM LEVOFOLINATE [Suspect]
     Indication: COLORECTAL CANCER
     Route: 041
     Dates: start: 20100825, end: 20101104
  7. FERROUS CITRATE [Concomitant]
     Route: 048
  8. ALOSENN [Concomitant]
     Route: 048
  9. ALBUMIN TANNATE [Concomitant]
     Route: 048
  10. FLUOROURACIL [Suspect]
     Route: 041
     Dates: start: 20100825, end: 20101104
  11. FERROUS CITRATE [Concomitant]
     Route: 048
  12. BIOFERMIN [Concomitant]
     Route: 048
  13. RINDERON-VG OINTMENT [Concomitant]
     Route: 062
  14. DIFFERIN [Concomitant]
     Route: 062
  15. LASIX [Concomitant]
     Route: 048
  16. CALONAL [Concomitant]
     Route: 048
  17. ADALAT CC [Concomitant]
     Route: 048
  18. PANITUMUMAB [Suspect]
     Dosage: 6 MG/KG, Q2WK
     Dates: start: 20101104, end: 20101104
  19. PONTAL [Concomitant]
     Route: 048
  20. LASIX [Concomitant]
     Route: 048
  21. SELBEX [Concomitant]
     Route: 048

REACTIONS (6)
  - BLOOD CREATININE INCREASED [None]
  - DERMATITIS ACNEIFORM [None]
  - GASTROINTESTINAL INFLAMMATION [None]
  - PARONYCHIA [None]
  - ANAEMIA [None]
  - DIARRHOEA [None]
